FAERS Safety Report 4566027-4 (Version None)
Quarter: 2005Q1

REPORT INFORMATION
  Report Type: 
  Country: None (occurrence: None)
  Receive Date: 20050131
  Receipt Date: 20041122
  Transmission Date: 20050727
  Serious: Yes (Hospitalization, Other)
  Sender: FDA-Public Use
  Company Number: US-MERCK-0411USA03666

PATIENT
  Age: 75 Year
  Sex: Female
  Weight: 71 kg

DRUGS (2)
  1. VIOXX [Suspect]
     Indication: ARTHRITIS
     Route: 048
     Dates: end: 20040610
  2. VIOXX [Suspect]
     Route: 048
     Dates: start: 20040101

REACTIONS (28)
  - ADVERSE EVENT [None]
  - ARACHNOIDITIS [None]
  - ARTERIAL INJURY [None]
  - ARTHROPATHY [None]
  - BACK PAIN [None]
  - BREAST CANCER [None]
  - CHOLELITHIASIS [None]
  - COLONIC STENOSIS [None]
  - EXOSTOSIS [None]
  - FOOT FRACTURE [None]
  - GASTRITIS [None]
  - HYPOAESTHESIA [None]
  - INTERMITTENT CLAUDICATION [None]
  - LUMBAR RADICULOPATHY [None]
  - LUMBAR SPINAL STENOSIS [None]
  - MYOFASCIAL PAIN SYNDROME [None]
  - NAUSEA [None]
  - NEUROPATHY PERIPHERAL [None]
  - OEDEMA PERIPHERAL [None]
  - OSTEOARTHRITIS [None]
  - PERIPHERAL VASCULAR DISORDER [None]
  - SCIATICA [None]
  - SPINAL OSTEOARTHRITIS [None]
  - STOMACH DISCOMFORT [None]
  - UPPER GASTROINTESTINAL HAEMORRHAGE [None]
  - UTERINE ENLARGEMENT [None]
  - UTERINE LEIOMYOMA [None]
  - VOMITING [None]
